FAERS Safety Report 4501766-2 (Version None)
Quarter: 2004Q4

REPORT INFORMATION
  Report Type: 
  Country: None (occurrence: None)
  Receive Date: 20041115
  Receipt Date: 20041115
  Transmission Date: 20050328
  Serious: Yes (Other)
  Sender: FDA-Public Use
  Company Number: None

PATIENT
  Sex: Female
  Weight: 74.8435 kg

DRUGS (1)
  1. CELEBREX [Suspect]
     Indication: BACK PAIN
     Dosage: ONCE    DAILY
     Dates: start: 20010905, end: 20040701

REACTIONS (2)
  - DESQUAMATION GINGIVAL [None]
  - STOMATITIS [None]
